FAERS Safety Report 9859519 (Version 1)
Quarter: 2014Q1

REPORT INFORMATION
  Report Type: Spontaneous
  Country: US (occurrence: US)
  Receive Date: 20140131
  Receipt Date: 20140131
  Transmission Date: 20141002
  Serious: No
  Sender: FDA-Public Use
  Company Number: US-009507513-1401USA011339

PATIENT
  Age: 67 Year
  Sex: Female

DRUGS (3)
  1. MIRALAX [Suspect]
     Indication: CONSTIPATION
     Dosage: UNK, QD
     Route: 048
  2. MIRALAX [Suspect]
     Indication: ABDOMINAL PAIN UPPER
  3. MIRALAX [Suspect]
     Indication: ABDOMINAL DISTENSION

REACTIONS (3)
  - Type 2 diabetes mellitus [Unknown]
  - Weight decreased [Unknown]
  - Incorrect drug administration duration [Unknown]
